FAERS Safety Report 13080215 (Version 5)
Quarter: 2017Q1

REPORT INFORMATION
  Report Type: Spontaneous
  Country: IT (occurrence: IT)
  Receive Date: 20170103
  Receipt Date: 20170331
  Transmission Date: 20170428
  Serious: Yes (Hospitalization)
  Sender: FDA-Public Use
  Company Number: IT-PFIZER INC-2016603650

PATIENT
  Age: 71 Year
  Sex: Female

DRUGS (8)
  1. ZOLOFT [Suspect]
     Active Substance: SERTRALINE HYDROCHLORIDE
     Dosage: 50 MG, SINGLE
     Route: 048
     Dates: start: 20161003, end: 20161003
  2. LYRICA [Interacting]
     Active Substance: PREGABALIN
     Dosage: 2 DF, SINGLE
     Route: 048
     Dates: start: 20161003, end: 20161003
  3. PALEXIA [Interacting]
     Active Substance: TAPENTADOL HYDROCHLORIDE
     Dosage: 2 DF, SINGLE
     Route: 048
     Dates: start: 20161003, end: 20161003
  4. OLPREZIDE [Interacting]
     Active Substance: HYDROCHLOROTHIAZIDE\OLMESARTAN MEDOXOMIL
     Dosage: 1 DF, SINGLE
     Route: 048
     Dates: start: 20161003, end: 20161003
  5. AKINETON [Interacting]
     Active Substance: BIPERIDEN HYDROCHLORIDE
     Dosage: 1 DF, SINGLE
     Route: 048
     Dates: start: 20161003, end: 20161003
  6. LANSOX [Interacting]
     Active Substance: LANSOPRAZOLE
     Dosage: UNK
  7. SERENASE /00027401/ [Interacting]
     Active Substance: HALOPERIDOL
     Dosage: 10 GTT, SINGLE
     Route: 048
     Dates: start: 20161003, end: 20161003
  8. EN [Interacting]
     Active Substance: DELORAZEPAM
     Dosage: 5 GTT, SINGLE
     Route: 048
     Dates: start: 20161003, end: 20161003

REACTIONS (6)
  - Hyponatraemia [Recovering/Resolving]
  - Dysarthria [Recovering/Resolving]
  - Somnolence [Recovering/Resolving]
  - Drug interaction [Recovering/Resolving]
  - Confusional state [Recovering/Resolving]
  - Drug abuse [Recovering/Resolving]

NARRATIVE: CASE EVENT DATE: 20161004
